FAERS Safety Report 5509824-0 (Version None)
Quarter: 2007Q4

REPORT INFORMATION
  Report Type: 
  Country: None (occurrence: None)
  Receive Date: 20071108
  Receipt Date: 20071030
  Transmission Date: 20080405
  Serious: Yes (Death, Life-Threatening)
  Sender: FDA-Public Use
  Company Number: SE-NOVOPROD-268979

PATIENT
  Age: 73 Year
  Sex: Female
  Weight: 60 kg

DRUGS (8)
  1. NOVOLOG MIX 70/30 [Suspect]
     Indication: INSULIN-REQUIRING TYPE II DIABETES MELLITUS
     Dosage: 22 IU, QD
     Route: 058
     Dates: start: 20070427, end: 20070831
  2. ENAPRIL                            /00574901/ [Concomitant]
     Dosage: 40 MG, QD
  3. ASPIRIN [Concomitant]
     Dosage: 75 MG, QD
  4. SIMVASTATIN [Concomitant]
     Dosage: 40 MG, QD
  5. BISOPROLOL FUMARATE [Concomitant]
     Dosage: 15 MG, QD
  6. IRBESARTAN [Concomitant]
     Dosage: 300 MG, QD
     Dates: start: 20070522
  7. DALTEPARIN SODIUM [Concomitant]
     Dosage: 5000 IU, QD
     Route: 058
     Dates: start: 20070526
  8. FELODIPINE [Concomitant]
     Dosage: 5 MG, QD
     Dates: start: 20070526

REACTIONS (5)
  - CARDIAC FAILURE [None]
  - OEDEMA PERIPHERAL [None]
  - PROTEINURIA [None]
  - RENAL FAILURE [None]
  - RESPIRATORY DISTRESS [None]
